FAERS Safety Report 23823316 (Version 1)
Quarter: 2024Q2

REPORT INFORMATION
  Report Type: Spontaneous
  Country: FR (occurrence: FR)
  Receive Date: 20240507
  Receipt Date: 20240507
  Transmission Date: 20240716
  Serious: Yes (Other)
  Sender: FDA-Public Use
  Company Number: FR-CELLTRION INC.-2024FR010180

PATIENT

DRUGS (15)
  1. TRASTUZUMAB [Suspect]
     Active Substance: TRASTUZUMAB
     Indication: Neuroendocrine carcinoma
     Dosage: UNK
     Dates: start: 20210323, end: 20210323
  2. PACLITAXEL [Suspect]
     Active Substance: PACLITAXEL
     Indication: Neuroendocrine carcinoma
     Dosage: UNK
     Route: 042
     Dates: start: 20210323, end: 20210323
  3. NOVORAPID [Concomitant]
     Active Substance: INSULIN ASPART
  4. SILODOSIN [Concomitant]
     Active Substance: SILODOSIN
  5. IMOVANE [Concomitant]
     Active Substance: ZOPICLONE
  6. ALPRAZOLAM [Concomitant]
     Active Substance: ALPRAZOLAM
  7. KARDEGIC [Concomitant]
     Active Substance: ASPIRIN DL-LYSINE
  8. EUPANTOL [Concomitant]
     Active Substance: PANTOPRAZOLE SODIUM
  9. BISOPROLOL [Concomitant]
     Active Substance: BISOPROLOL\BISOPROLOL FUMARATE
  10. LANTUS [Concomitant]
     Active Substance: INSULIN GLARGINE
  11. EZETIMIBE\SIMVASTATIN [Concomitant]
     Active Substance: EZETIMIBE\SIMVASTATIN
  12. ALFUZOSIN [Concomitant]
     Active Substance: ALFUZOSIN
  13. SPIRIVA [Concomitant]
     Active Substance: TIOTROPIUM BROMIDE MONOHYDRATE
  14. DAPAGLIFLOZIN [Concomitant]
     Active Substance: DAPAGLIFLOZIN
  15. MELATONIN [Concomitant]
     Active Substance: MELATONIN

REACTIONS (2)
  - Type I hypersensitivity [Recovered/Resolved]
  - Intentional product use issue [Unknown]

NARRATIVE: CASE EVENT DATE: 20210323
